FAERS Safety Report 14243507 (Version 4)
Quarter: 2019Q4

REPORT INFORMATION
  Report Type: Spontaneous
  Country: US (occurrence: US)
  Receive Date: 20171201
  Receipt Date: 20191001
  Transmission Date: 20200122
  Serious: Yes (Other)
  Sender: FDA-Public Use
  Company Number: US-GEHC-2017CSU003920

PATIENT
  Age: 60 Year
  Sex: Male

DRUGS (12)
  1. KENALOG [Suspect]
     Active Substance: TRIAMCINOLONE ACETONIDE
     Dosage: 100 MG, SINGLE
     Route: 008
     Dates: start: 20170511, end: 20170511
  2. OMNIPAQUE [Suspect]
     Active Substance: IOHEXOL
     Indication: INTERVERTEBRAL DISC DEGENERATION
     Dosage: 2 ML, SINGLE
     Route: 008
     Dates: start: 20170407, end: 20170407
  3. LIDOCAINE                          /00033402/ [Suspect]
     Active Substance: LIDOCAINE
     Indication: PRODUCT USED FOR UNKNOWN INDICATION
     Dosage: 3.5 ML, SINGLE
     Route: 008
     Dates: start: 20170407, end: 20170407
  4. LIDOCAINE                          /00033402/ [Suspect]
     Active Substance: LIDOCAINE
     Dosage: 2.5 ML, SINGLE
     Route: 008
     Dates: start: 20170511, end: 20170511
  5. KENALOG [Suspect]
     Active Substance: TRIAMCINOLONE ACETONIDE
     Dosage: 100 MG, SINGLE
     Route: 008
     Dates: start: 20170622, end: 20170622
  6. OMNIPAQUE [Suspect]
     Active Substance: IOHEXOL
     Dosage: 2 ML, SINGLE
     Route: 008
     Dates: start: 20170622, end: 20170622
  7. NORMAL SALINE [Suspect]
     Active Substance: SODIUM CHLORIDE
     Dosage: 1 ML, SINGLE
     Route: 008
     Dates: start: 20170511, end: 20170511
  8. NORMAL SALINE [Suspect]
     Active Substance: SODIUM CHLORIDE
     Dosage: 1 ML, SINGLE
     Route: 008
     Dates: start: 20170622, end: 20170622
  9. OMNIPAQUE [Suspect]
     Active Substance: IOHEXOL
     Dosage: 2 ML, SINGLE
     Route: 008
     Dates: start: 20170511, end: 20170511
  10. NORMAL SALINE [Suspect]
     Active Substance: SODIUM CHLORIDE
     Indication: PRODUCT USED FOR UNKNOWN INDICATION
     Dosage: 1 ML, SINGLE
     Route: 008
     Dates: start: 20170407, end: 20170407
  11. KENALOG [Suspect]
     Active Substance: TRIAMCINOLONE ACETONIDE
     Indication: PRODUCT USED FOR UNKNOWN INDICATION
     Dosage: 100 MG, SINGLE
     Route: 008
     Dates: start: 20170407, end: 20170407
  12. LIDOCAINE                          /00033402/ [Suspect]
     Active Substance: LIDOCAINE
     Dosage: 2.5 ML, SINGLE
     Route: 008
     Dates: start: 20170622, end: 20170622

REACTIONS (3)
  - Fungal infection [Recovering/Resolving]
  - Off label use [Unknown]
  - Spinal cord abscess [Recovering/Resolving]

NARRATIVE: CASE EVENT DATE: 20170407
